FAERS Safety Report 6857118-3 (Version None)
Quarter: 2010Q3

REPORT INFORMATION
  Report Type: 
  Country: None (occurrence: None)
  Receive Date: 20100719
  Receipt Date: 20100713
  Transmission Date: 20110219
  Serious: Yes (Hospitalization)
  Sender: FDA-Public Use
  Company Number: B0664717A

PATIENT
  Sex: Female
  Weight: 66 kg

DRUGS (1)
  1. ZYBAN [Suspect]
     Dosage: 300MG PER DAY
     Route: 048
     Dates: start: 20080128, end: 20080407

REACTIONS (13)
  - CONFUSIONAL STATE [None]
  - DEPRESSED MOOD [None]
  - ILL-DEFINED DISORDER [None]
  - INSOMNIA [None]
  - MENTAL DISORDER [None]
  - NAUSEA [None]
  - NERVOUSNESS [None]
  - PAIN [None]
  - PRURITUS [None]
  - SOMNOLENCE [None]
  - SPEECH DISORDER [None]
  - SYNCOPE [None]
  - VOMITING [None]
